FAERS Safety Report 24646857 (Version 1)
Quarter: 2024Q4

REPORT INFORMATION
  Report Type: Spontaneous
  Country: US (occurrence: None)
  Receive Date: 20241120
  Receipt Date: 20241120
  Transmission Date: 20250115
  Serious: No
  Sender: Public
  Company Number: None

PATIENT
  Sex: Female

DRUGS (1)
  1. VUMERITY [Suspect]
     Active Substance: DIROXIMEL FUMARATE
     Indication: Multiple sclerosis
     Dosage: OTHER QUANTITY : 2 CAPS;?FREQUENCY : TWICE A DAY;?
     Route: 048
     Dates: start: 202411

REACTIONS (3)
  - Diarrhoea [None]
  - Quality of life decreased [None]
  - Dyschezia [None]
